FAERS Safety Report 9799563 (Version 3)
Quarter: 2015Q3

REPORT INFORMATION
  Report Type: Spontaneous
  Country: US (occurrence: US)
  Receive Date: 20140106
  Receipt Date: 20150806
  Transmission Date: 20151125
  Serious: No
  Sender: FDA-Public Use
  Company Number: US-GILEAD-2010-0030144

PATIENT
  Age: 83 Year
  Sex: Female
  Weight: 45.36 kg

DRUGS (15)
  1. DETROL LA [Concomitant]
     Active Substance: TOLTERODINE TARTRATE
  2. LETAIRIS [Suspect]
     Active Substance: AMBRISENTAN
     Indication: PULMONARY ARTERIAL HYPERTENSION
     Route: 048
     Dates: start: 20090227
  3. SYNTHROID [Concomitant]
     Active Substance: LEVOTHYROXINE SODIUM
  4. NEXIUM [Concomitant]
     Active Substance: ESOMEPRAZOLE MAGNESIUM
  5. MULTIVITAMIN [Concomitant]
     Active Substance: VITAMINS
  6. METOPROLOL [Concomitant]
     Active Substance: METOPROLOL
  7. NITROGLYCERIN. [Concomitant]
     Active Substance: NITROGLYCERIN
  8. NITROFURANTOIN. [Concomitant]
     Active Substance: NITROFURANTOIN
  9. COUMADIN [Concomitant]
     Active Substance: WARFARIN SODIUM
  10. SPIRONOLACTONE. [Concomitant]
     Active Substance: SPIRONOLACTONE
  11. CRESTOR [Concomitant]
     Active Substance: ROSUVASTATIN CALCIUM
  12. LASIX [Concomitant]
     Active Substance: FUROSEMIDE
  13. LANOXIN [Concomitant]
     Active Substance: DIGOXIN
  14. DIOVAN [Concomitant]
     Active Substance: VALSARTAN
  15. OSCAL [Concomitant]
     Active Substance: CALCIUM CARBONATE

REACTIONS (2)
  - Laboratory test abnormal [Unknown]
  - Swelling [Unknown]
